FAERS Safety Report 4334140-2 (Version None)
Quarter: 2004Q2

REPORT INFORMATION
  Report Type: 
  Country: None (occurrence: None)
  Receive Date: 20040402
  Receipt Date: 20040326
  Transmission Date: 20050107
  Serious: Yes (Hospitalization)
  Sender: FDA-Public Use
  Company Number: 044-0981-980146

PATIENT
  Age: 63 Year
  Sex: Male
  Weight: 78.5 kg

DRUGS (9)
  1. ATORVASTATIN (ATORVASTATIN) [Suspect]
     Indication: HYPERCHOLESTEROLAEMIA
     Dosage: 80 MG (DAILY), ORAL
     Route: 048
     Dates: start: 19970227
  2. ACETYLSALICYLIC ACID SRT [Concomitant]
  3. BUMETANIDE (BUMETADINE) [Concomitant]
  4. CARBAMAZEPINE [Concomitant]
  5. CAERVEDILOL (CARVEDILOL) [Concomitant]
  6. INSULIN INJECTION, BIPHASIC (INSULIN INJECTION, BIPHASIC) [Concomitant]
  7. DILTIAZEM [Concomitant]
  8. ENALAPRIL MALEATE [Concomitant]
  9. ISOSORBIDE MONONITRATE [Concomitant]

REACTIONS (5)
  - BLOOD GLUCOSE INCREASED [None]
  - CIRCULATORY COLLAPSE [None]
  - CONVULSION [None]
  - HEMIPARESIS [None]
  - LOSS OF CONSCIOUSNESS [None]
